FAERS Safety Report 9771436 (Version 2)
Quarter: 2017Q1

REPORT INFORMATION
  Report Type: Spontaneous
  Country: BE (occurrence: BE)
  Receive Date: 20131219
  Receipt Date: 20170123
  Transmission Date: 20170429
  Serious: Yes (Other)
  Sender: FDA-Public Use
  Company Number: BE-JNJFOC-20131210776

PATIENT
  Sex: Female

DRUGS (2)
  1. CIRRUS [Suspect]
     Active Substance: CETIRIZINE HYDROCHLORIDE\PSEUDOEPHEDRINE HYDROCHLORIDE
     Indication: RHINITIS
     Dosage: 1 DOSE PER INTAKE
     Route: 048
  2. CIRRUS [Suspect]
     Active Substance: CETIRIZINE HYDROCHLORIDE\PSEUDOEPHEDRINE HYDROCHLORIDE
     Indication: SINUSITIS
     Dosage: 1 DOSE PER INTAKE
     Route: 048

REACTIONS (4)
  - Flushing [Unknown]
  - Vasodilation procedure [Unknown]
  - Lip oedema [Unknown]
  - Pruritus [Unknown]
